FAERS Safety Report 5389736-6 (Version None)
Quarter: 2007Q3

REPORT INFORMATION
  Report Type: 
  Country: None (occurrence: None)
  Receive Date: 20070717
  Receipt Date: 20070703
  Transmission Date: 20080115
  Serious: Yes (Death, Hospitalization, Other)
  Sender: FDA-Public Use
  Company Number: US-ELI_LILLY_AND_COMPANY-US200707000650

PATIENT
  Age: 54 Year
  Sex: Male
  Weight: 126.98 kg

DRUGS (8)
  1. CYMBALTA [Suspect]
     Indication: MAJOR DEPRESSION
     Dosage: 60 MG, UNK
     Dates: start: 20070104
  2. LAMICTAL [Concomitant]
     Dosage: 100 MG, DAILY (1/D)
     Dates: start: 20070320
  3. TRAZODONE HCL [Concomitant]
     Dosage: 100 MG, EACH EVENING
  4. INSULIN [Concomitant]
  5. LASIX [Concomitant]
     Dosage: 20 MG, DAILY (1/D)
  6. IBUPROFEN [Concomitant]
     Dosage: 600 MG, 3/D
  7. SPIRONOLACTONE [Concomitant]
     Dosage: UNK, DAILY (1/D)
  8. ATENOLOL [Concomitant]
     Dosage: 50 MG, DAILY (1/D)

REACTIONS (2)
  - HEPATIC FAILURE [None]
  - HEPATOTOXICITY [None]
